FAERS Safety Report 10991884 (Version 4)
Quarter: 2015Q2

REPORT INFORMATION
  Report Type: Report from Study
  Country: NL (occurrence: NL)
  Receive Date: 20150406
  Receipt Date: 20150420
  Transmission Date: 20150821
  Serious: Yes (Hospitalization, Other)
  Sender: FDA-Public Use
  Company Number: NL-ABBVIE-15P-114-1369050-00

PATIENT
  Age: 58 Year
  Sex: Male
  Weight: 79 kg

DRUGS (3)
  1. DAKTARIN [Concomitant]
     Active Substance: MICONAZOLE NITRATE
     Indication: INFECTION
     Route: 048
     Dates: start: 20150409
  2. LUCRIN [Suspect]
     Active Substance: LEUPROLIDE ACETATE
     Indication: PROSTATE CANCER
     Route: 058
     Dates: start: 20111117, end: 20120515
  3. LUCRIN [Suspect]
     Active Substance: LEUPROLIDE ACETATE
     Indication: PROSTATE CANCER
     Route: 058
     Dates: start: 20120516

REACTIONS (6)
  - Nausea [Recovering/Resolving]
  - Metastatic pain [Recovering/Resolving]
  - Fungal infection [Unknown]
  - Metastasis [Recovering/Resolving]
  - Vomiting [Recovered/Resolved]
  - Constipation [Recovered/Resolved]

NARRATIVE: CASE EVENT DATE: 201501
